FAERS Safety Report 25842507 (Version 1)
Quarter: 2025Q3

REPORT INFORMATION
  Report Type: Spontaneous
  Country: GB (occurrence: GB)
  Receive Date: 20250924
  Receipt Date: 20250924
  Transmission Date: 20251020
  Serious: Yes (Other)
  Sender: GRIFOLS
  Company Number: None

PATIENT
  Age: 2 Year
  Sex: Female
  Weight: 12.1 kg

DRUGS (1)
  1. XEMBIFY [Suspect]
     Active Substance: HUMAN IMMUNOGLOBULIN G
     Indication: Hypogammaglobulinaemia
     Dosage: 2 GRAM, Q.2WK.
     Route: 058
     Dates: start: 20250711

REACTIONS (6)
  - Infusion site swelling [Recovered/Resolved]
  - Infusion site scab [Recovered/Resolved]
  - Infusion site erythema [Recovered/Resolved]
  - Infusion site ulcer [Recovered/Resolved]
  - Infusion site necrosis [Recovered/Resolved]
  - Blister [Recovering/Resolving]

NARRATIVE: CASE EVENT DATE: 20250821
